FAERS Safety Report 14392495 (Version 2)
Quarter: 2018Q2

REPORT INFORMATION
  Report Type: Spontaneous
  Country: CA (occurrence: CA)
  Receive Date: 20180116
  Receipt Date: 20180510
  Transmission Date: 20180711
  Serious: Yes (Life-Threatening, Hospitalization, Other)
  Sender: FDA-Public Use
  Company Number: CA-OTSUKA-2018_000236

PATIENT
  Age: 52 Year
  Sex: Male
  Weight: 69 kg

DRUGS (14)
  1. RISPERIDONE. [Suspect]
     Active Substance: RISPERIDONE
     Dosage: 4 MG, QD (1 EVERY 1 DAY) (4 MG HS)
     Route: 065
     Dates: start: 20170529
  2. ABILIFY [Suspect]
     Active Substance: ARIPIPRAZOLE
     Indication: PRODUCT USED FOR UNKNOWN INDICATION
     Dosage: 4 MG, UNK
     Route: 065
     Dates: start: 2017
  3. QUETIAPINE. [Concomitant]
     Active Substance: QUETIAPINE
     Indication: PRODUCT USED FOR UNKNOWN INDICATION
     Dosage: 200 MG, QD (1 EVERY 1 DAYS) (200 MG HS)
     Route: 065
  4. CLOZAPINE. [Suspect]
     Active Substance: CLOZAPINE
     Dosage: 50 MG, QD ((1 EVERY 1 DAY)
     Route: 065
     Dates: start: 20170422
  5. CLOZAPINE. [Suspect]
     Active Substance: CLOZAPINE
     Dosage: 75 MG, UNK
     Route: 065
     Dates: start: 20170423
  6. CLOZAPINE. [Suspect]
     Active Substance: CLOZAPINE
     Indication: PSYCHOTIC DISORDER
     Dosage: 75 MG, QD (1 EVERY 1 DAY)
     Route: 065
     Dates: start: 20170427, end: 20170427
  7. CLOZAPINE. [Suspect]
     Active Substance: CLOZAPINE
     Dosage: 125 MG, UNK
     Route: 065
     Dates: start: 20170425
  8. CLOZAPINE. [Suspect]
     Active Substance: CLOZAPINE
     Dosage: 100 MG, UNK
     Route: 065
     Dates: start: 20170424
  9. CITALOPRAM [Concomitant]
     Active Substance: CITALOPRAM HYDROBROMIDE
     Indication: PRODUCT USED FOR UNKNOWN INDICATION
     Dosage: 40 MG, QD (1 EVERY 1 DAYS)
     Route: 065
  10. LOXAPINE. [Concomitant]
     Active Substance: LOXAPINE
     Dosage: 2.5 MG, QD (1 EVERY 1 DAYS)
     Route: 065
  11. CLOZAPINE. [Suspect]
     Active Substance: CLOZAPINE
     Dosage: UNK
     Route: 065
  12. LOXAPINE. [Concomitant]
     Active Substance: LOXAPINE
     Indication: PRODUCT USED FOR UNKNOWN INDICATION
     Dosage: 5 MG, QD (1 EVERY 1 DAYS) (5 MG, AM)
     Route: 065
  13. CLOZAPINE. [Suspect]
     Active Substance: CLOZAPINE
     Indication: SCHIZOPHRENIA
     Dosage: 25 MG, QD (1 EVERY 1 DAY)
     Route: 065
     Dates: start: 20170421
  14. RISPERIDONE. [Suspect]
     Active Substance: RISPERIDONE
     Indication: PRODUCT USED FOR UNKNOWN INDICATION
     Dosage: 3 MG, QD (1 EVERY 1 DAY)
     Route: 065
     Dates: start: 201704

REACTIONS (13)
  - Chronic kidney disease [Recovering/Resolving]
  - Blood bilirubin increased [Unknown]
  - Blood glucose increased [Unknown]
  - Neuroleptic malignant syndrome [Unknown]
  - Troponin I increased [Not Recovered/Not Resolved]
  - Haemoglobin increased [Unknown]
  - Adjusted calcium increased [Not Recovered/Not Resolved]
  - Blood phosphorus increased [Unknown]
  - Blood sodium increased [Unknown]
  - Protein total increased [Unknown]
  - Bilirubin urine present [Unknown]
  - Alanine aminotransferase increased [Not Recovered/Not Resolved]
  - Blood calcium decreased [Not Recovered/Not Resolved]

NARRATIVE: CASE EVENT DATE: 20170427
